FAERS Safety Report 6869229-7 (Version None)
Quarter: 2010Q3

REPORT INFORMATION
  Report Type: 
  Country: None (occurrence: None)
  Receive Date: 20100722
  Receipt Date: 20080729
  Transmission Date: 20110219
  Serious: No
  Sender: FDA-Public Use
  Company Number: US-PFIZER INC-2008057803

PATIENT
  Sex: Male
  Weight: 52.272 kg

DRUGS (2)
  1. CHANTIX [Suspect]
     Indication: SMOKING CESSATION THERAPY
     Dates: start: 20080621, end: 20080701
  2. DRUG, UNSPECIFIED [Concomitant]

REACTIONS (4)
  - IRRITABILITY [None]
  - MOOD SWINGS [None]
  - NIGHT SWEATS [None]
  - NIGHTMARE [None]
